FAERS Safety Report 10885830 (Version 1)
Quarter: 2015Q1

REPORT INFORMATION
  Report Type: Spontaneous
  Country: GB (occurrence: None)
  Receive Date: 20150302
  Receipt Date: 20150302
  Transmission Date: 20150721
  Serious: Yes (Hospitalization)
  Sender: FDA-Public Use
  Company Number: AXC-2015-000084

PATIENT
  Sex: Female

DRUGS (1)
  1. NITROGLYCERIN (NITROGLYCERIN) RECTAL OINTMENT [Suspect]
     Active Substance: NITROGLYCERIN
     Indication: ANAL FISSURE

REACTIONS (2)
  - Pain [None]
  - Haemorrhoids [None]
